FAERS Safety Report 22340310 (Version 1)
Quarter: 2023Q2

REPORT INFORMATION
  Report Type: Spontaneous
  Country: US (occurrence: US)
  Receive Date: 20230518
  Receipt Date: 20230518
  Transmission Date: 20230722
  Serious: No
  Sender: FDA-Public Use
  Company Number: US-PFIZER INC-PV202300085405

PATIENT
  Age: 71 Year
  Sex: Female

DRUGS (1)
  1. XELJANZ [Suspect]
     Active Substance: TOFACITINIB CITRATE
     Dosage: UNK

REACTIONS (11)
  - Arthralgia [Unknown]
  - Eye swelling [Unknown]
  - Ocular hyperaemia [Unknown]
  - Cough [Unknown]
  - Back pain [Unknown]
  - Pain in jaw [Unknown]
  - Dyspnoea [Unknown]
  - Tinnitus [Unknown]
  - Paraesthesia [Unknown]
  - Hyperhidrosis [Unknown]
  - Headache [Unknown]
